FAERS Safety Report 18059734 (Version 1)
Quarter: 2020Q3

REPORT INFORMATION
  Report Type: Spontaneous
  Country: US (occurrence: US)
  Receive Date: 20200723
  Receipt Date: 20200723
  Transmission Date: 20201103
  Serious: Yes (Death, Hospitalization)
  Sender: FDA-Public Use
  Company Number: None

PATIENT
  Sex: Male
  Weight: 67.5 kg

DRUGS (2)
  1. VOSEVI [Suspect]
     Active Substance: SOFOSBUVIR\VELPATASVIR\VOXILAPREVIR
     Indication: HEPATITIS C
     Dosage: ?          QUANTITY:28 TABLET(S);?
     Route: 048
     Dates: start: 20200222, end: 20200304
  2. CANNABIS OIL [Concomitant]
     Active Substance: CANNABIS SATIVA SEED OIL\HERBALS

REACTIONS (9)
  - Product complaint [None]
  - Iatrogenic injury [None]
  - Hepatic failure [None]
  - Multiple organ dysfunction syndrome [None]
  - Fall [None]
  - Renal failure [None]
  - Drug monitoring procedure not performed [None]
  - Gait inability [None]
  - Feeling abnormal [None]
